FAERS Safety Report 12216993 (Version 6)
Quarter: 2016Q4

REPORT INFORMATION
  Report Type: Spontaneous
  Country: US (occurrence: US)
  Receive Date: 20160329
  Receipt Date: 20161123
  Transmission Date: 20170207
  Serious: Yes (Death, Other)
  Sender: FDA-Public Use
  Company Number: PHEH2016US007037

PATIENT
  Age: 47 Year
  Sex: Male

DRUGS (2)
  1. SPRYCEL [Suspect]
     Active Substance: DASATINIB
     Indication: CHRONIC MYELOID LEUKAEMIA
     Dosage: 100 MG, QD (FROM FIRST WEEK OF NOV 2013)
     Route: 065
     Dates: start: 201311
  2. TASIGNA [Suspect]
     Active Substance: NILOTINIB
     Indication: CHRONIC MYELOID LEUKAEMIA
     Dosage: 2 DF, BID
     Route: 048
     Dates: start: 20121029, end: 201311

REACTIONS (68)
  - Coronary artery disease [Fatal]
  - Dilatation ventricular [Unknown]
  - Cardiomegaly [Unknown]
  - Myopia [Unknown]
  - Hyperlipidaemia [Unknown]
  - Paraesthesia [Unknown]
  - Blister [Unknown]
  - Cough [Unknown]
  - Hyperhidrosis [Unknown]
  - Peripheral artery stenosis [Fatal]
  - Respiratory failure [Unknown]
  - Depressed level of consciousness [Unknown]
  - Mitral valve incompetence [Unknown]
  - Cerebrovascular accident [Unknown]
  - Peripheral ischaemia [Unknown]
  - Mental status changes [Unknown]
  - Hypertension [Recovering/Resolving]
  - Decreased appetite [Unknown]
  - Peripheral arterial occlusive disease [Fatal]
  - Second primary malignancy [Unknown]
  - Retroperitoneal haematoma [Unknown]
  - Pneumonia [Unknown]
  - Hypoaesthesia [Unknown]
  - Neuropathy peripheral [Unknown]
  - Cerebral artery stenosis [Fatal]
  - Prostate cancer [Unknown]
  - General physical health deterioration [Unknown]
  - Peripheral artery occlusion [Unknown]
  - Corneal abrasion [Unknown]
  - Metabolic acidosis [Unknown]
  - Pain in extremity [Unknown]
  - Coronary artery stenosis [Fatal]
  - Cerebral arteriosclerosis [Fatal]
  - Shock haemorrhagic [Unknown]
  - Injury [Unknown]
  - Emotional distress [Unknown]
  - Thyroid cyst [Unknown]
  - Pain [Unknown]
  - Hypocalcaemia [Unknown]
  - Insomnia [Unknown]
  - Cardiac failure congestive [Unknown]
  - Quality of life decreased [Unknown]
  - Pedal pulse abnormal [Unknown]
  - Presbyopia [Unknown]
  - Tendonitis [Unknown]
  - Oliguria [Unknown]
  - Anaemia [Unknown]
  - Tachycardia [Unknown]
  - Weight decreased [Unknown]
  - Asthenia [Unknown]
  - Dyspnoea [Unknown]
  - Arteriosclerosis [Fatal]
  - Conjunctival haemorrhage [Unknown]
  - Abasia [Unknown]
  - Left ventricular hypertrophy [Unknown]
  - Peripheral vascular disorder [Unknown]
  - Cataract [Unknown]
  - Astigmatism [Unknown]
  - Intermittent claudication [Unknown]
  - Hyperglycaemia [Unknown]
  - Arteriosclerosis coronary artery [Fatal]
  - Type 2 diabetes mellitus [Recovering/Resolving]
  - Myocardial infarction [Unknown]
  - Muscle tightness [Unknown]
  - Somnolence [Unknown]
  - Hypotension [Unknown]
  - Anxiety [Unknown]
  - Muscle spasms [Unknown]

NARRATIVE: CASE EVENT DATE: 201301
